FAERS Safety Report 12995582 (Version 2)
Quarter: 2017Q1

REPORT INFORMATION
  Report Type: Spontaneous
  Country: BR (occurrence: BR)
  Receive Date: 20161202
  Receipt Date: 20170112
  Transmission Date: 20170428
  Serious: Yes (Other)
  Sender: FDA-Public Use
  Company Number: BR-GLAXOSMITHKLINE-BR2016GSK175328

PATIENT
  Age: 6 Year
  Sex: Female
  Weight: 30 kg

DRUGS (10)
  1. AZITHROMYCIN ANHYDROUS. [Suspect]
     Active Substance: AZITHROMYCIN ANHYDROUS
     Indication: PHARYNGITIS
  2. AZITHROMYCIN ANHYDROUS. [Suspect]
     Active Substance: AZITHROMYCIN ANHYDROUS
     Indication: PNEUMONIA
     Dosage: 7 ML, QD
  3. SALBUTAMOL [Suspect]
     Active Substance: ALBUTEROL
     Indication: PNEUMONIA
     Dosage: UNK
     Route: 042
  4. AEROLIN [Suspect]
     Active Substance: ALBUTEROL
     Indication: PNEUMONIA
     Dosage: UNK
     Dates: start: 201606
  5. AEROLIN [Suspect]
     Active Substance: ALBUTEROL
     Indication: DYSPNOEA
     Dosage: 4 PUFF(S), UNK, USED 4 PUFFS EACH 4 HOURS
  6. AEROLIN [Suspect]
     Active Substance: ALBUTEROL
     Dosage: 4 PUFF(S), UNK, 4 PUFFS EACH 12 HOURS
  7. RANITIDINE. [Concomitant]
     Active Substance: RANITIDINE
     Indication: HYPERCHLORHYDRIA
  8. LORATADINE. [Concomitant]
     Active Substance: LORATADINE
     Indication: HYPERSENSITIVITY
     Dosage: UNK, 3 DAYS AND A HALF
     Route: 048
  9. AEROLIN [Suspect]
     Active Substance: ALBUTEROL
     Dosage: 4 PUFF(S), UNK, 4 PUFFS EVERY 6 HOURS
  10. AEROLIN [Suspect]
     Active Substance: ALBUTEROL
     Dosage: 4 PUFF(S), UNK, 4 PUFFS EACH 8 HOURS

REACTIONS (11)
  - Wheezing [Unknown]
  - Pneumonia [Unknown]
  - Fatigue [Unknown]
  - Product use issue [Unknown]
  - Dyspnoea [Unknown]
  - Pharyngitis [Recovered/Resolved]
  - Overdose [Unknown]
  - Therapeutic response unexpected [Unknown]
  - Inappropriate schedule of drug administration [Unknown]
  - Pulmonary fibrosis [Unknown]
  - Product quality issue [Unknown]

NARRATIVE: CASE EVENT DATE: 201606
